FAERS Safety Report 25725902 (Version 1)
Quarter: 2025Q3

REPORT INFORMATION
  Report Type: Spontaneous
  Country: EU (occurrence: EU)
  Receive Date: 20250826
  Receipt Date: 20250826
  Transmission Date: 20251020
  Serious: Yes (Other)
  Sender: RANBAXY
  Company Number: EU-SUN PHARMACEUTICAL INDUSTRIES INC-2025RR-524258

PATIENT
  Age: 21 Year
  Sex: Male

DRUGS (4)
  1. PREGABALIN [Suspect]
     Active Substance: PREGABALIN
     Indication: Product used for unknown indication
     Route: 065
     Dates: start: 20250403, end: 20250404
  2. PREGABALIN [Suspect]
     Active Substance: PREGABALIN
     Route: 045
     Dates: start: 20250407, end: 20250407
  3. PREGABALIN [Suspect]
     Active Substance: PREGABALIN
     Route: 048
     Dates: start: 20250407, end: 20250407
  4. COCAINE [Suspect]
     Active Substance: COCAINE
     Indication: Product used for unknown indication
     Route: 065
     Dates: start: 20250403, end: 20250404

REACTIONS (4)
  - Substance abuse [Unknown]
  - Altered state of consciousness [Recovered/Resolved]
  - Intentional overdose [Recovered/Resolved]
  - Sinus tachycardia [Recovered/Resolved]

NARRATIVE: CASE EVENT DATE: 20250401
